FAERS Safety Report 8166549-3 (Version None)
Quarter: 2012Q1

REPORT INFORMATION
  Report Type: 
  Country: None (occurrence: None)
  Receive Date: 20120227
  Receipt Date: 20110805
  Transmission Date: 20120608
  Serious: Yes (Other)
  Sender: FDA-Public Use
  Company Number: US-BRISTOL-MYERS SQUIBB COMPANY-15952054

PATIENT
  Sex: Female

DRUGS (2)
  1. TAXOL [Suspect]
  2. CARBOPLATIN [Suspect]

REACTIONS (1)
  - NEOPLASM MALIGNANT [None]
